FAERS Safety Report 7127611-7 (Version None)
Quarter: 2010Q4

REPORT INFORMATION
  Report Type: 
  Country: None (occurrence: None)
  Receive Date: 20101130
  Receipt Date: 20101029
  Transmission Date: 20110411
  Serious: Yes (Other)
  Sender: FDA-Public Use
  Company Number: GB-AMGEN-GBRCT2010002097

PATIENT

DRUGS (3)
  1. ENBREL [Suspect]
     Indication: RHEUMATOID ARTHRITIS
     Dosage: 25 MG, 2 TIMES/WK
     Dates: start: 20040915, end: 20041115
  2. NAPROXEN [Concomitant]
     Dosage: UNKNOWN
  3. PREDNISOLONE [Concomitant]
     Dosage: UNKNOWN

REACTIONS (1)
  - PROSTATE CANCER [None]
